FAERS Safety Report 4391711-5 (Version None)
Quarter: 2004Q3

REPORT INFORMATION
  Report Type: 
  Country: None (occurrence: None)
  Receive Date: 20040701
  Receipt Date: 20040616
  Transmission Date: 20050211
  Serious: Yes (Hospitalization)
  Sender: FDA-Public Use
  Company Number: 198205

PATIENT
  Age: 75 Year
  Sex: Male
  Weight: 95.2554 kg

DRUGS (7)
  1. AVONEX [Suspect]
     Indication: MULTIPLE SCLEROSIS
     Dosage: 30 MCG QW IM
     Route: 030
     Dates: start: 19990101, end: 20031201
  2. AVONEX [Suspect]
     Indication: MULTIPLE SCLEROSIS
     Dosage: 30 MCG QW IM
     Route: 030
     Dates: start: 20031201, end: 20040101
  3. AVONEX [Suspect]
     Indication: MULTIPLE SCLEROSIS
     Dosage: 30 MCG QW IM
     Route: 030
     Dates: start: 20040401
  4. ZOCOR [Concomitant]
  5. SYNTHROID [Concomitant]
  6. NEURONTIN [Concomitant]
  7. KLONOPIN [Concomitant]

REACTIONS (12)
  - ABASIA [None]
  - ASTHENIA [None]
  - BLADDER DISORDER [None]
  - BRUXISM [None]
  - CONFUSIONAL STATE [None]
  - FALL [None]
  - HALLUCINATION, VISUAL [None]
  - OEDEMA PERIPHERAL [None]
  - PNEUMONIA ASPIRATION [None]
  - RASH ERYTHEMATOUS [None]
  - RASH GENERALISED [None]
  - TINNITUS [None]
